FAERS Safety Report 25966272 (Version 1)
Quarter: 2025Q4

REPORT INFORMATION
  Report Type: Spontaneous
  Country: CA (occurrence: CA)
  Receive Date: 20251028
  Receipt Date: 20251028
  Transmission Date: 20260118
  Serious: Yes (Other)
  Sender: SANOFI AVENTIS
  Company Number: CA-SA-2025SA311991

PATIENT
  Age: 38 Year
  Sex: Female
  Weight: 90 kg

DRUGS (13)
  1. DUPIXENT [Suspect]
     Active Substance: DUPILUMAB
     Indication: Dermatitis atopic
     Dosage: 600 MG, 1X
     Route: 065
     Dates: start: 202402, end: 202402
  2. DUPIXENT [Suspect]
     Active Substance: DUPILUMAB
     Dosage: 300 MG, QOW
     Route: 065
     Dates: start: 2024, end: 202503
  3. DUPIXENT [Suspect]
     Active Substance: DUPILUMAB
     Dosage: 300 MG, QOW
     Route: 065
     Dates: start: 202507
  4. CYCLOSPORINE [Suspect]
     Active Substance: CYCLOSPORINE
     Dosage: 200 MG; BID ON WEEKENDS
     Route: 065
     Dates: start: 202503, end: 202503
  5. CYCLOSPORINE [Suspect]
     Active Substance: CYCLOSPORINE
     Dosage: 200 MG, BID/ 200MG BID EVERY DAY
     Route: 065
     Dates: start: 202507
  6. ROFLUMILAST [Concomitant]
     Active Substance: ROFLUMILAST
  7. MOMETASONE [Concomitant]
     Active Substance: MOMETASONE
  8. HYDROCORTISONE [Concomitant]
     Active Substance: HYDROCORTISONE
     Dosage: UNK
  9. DESONIDE [Concomitant]
     Active Substance: DESONIDE
     Dosage: CR BID FOR THE FACE
  10. BETAMETHASONE [Concomitant]
     Active Substance: BETAMETHASONE
     Dosage: BID FOR THE BODY,
  11. TACROLIMUS [Concomitant]
     Active Substance: TACROLIMUS
     Dosage: UNK UNK, BID
  12. ROFLUMILAST [Concomitant]
     Active Substance: ROFLUMILAST
     Dosage: UNK, FOR THE FACE AND BODY, WITH SAME CORTICOSTEROIDS
  13. ITRACONAZOLE [Concomitant]
     Active Substance: ITRACONAZOLE
     Indication: Dermatitis atopic
     Dosage: UNK

REACTIONS (8)
  - Abortion spontaneous [Unknown]
  - Antiphospholipid syndrome [Unknown]
  - Fatigue [Unknown]
  - Sleep disorder due to a general medical condition [Unknown]
  - Eczema [Recovering/Resolving]
  - Skin lesion [Recovering/Resolving]
  - Pruritus [Not Recovered/Not Resolved]
  - Maternal exposure during pregnancy [Unknown]

NARRATIVE: CASE EVENT DATE: 20250101
